FAERS Safety Report 12158126 (Version 1)
Quarter: 2016Q1

REPORT INFORMATION
  Report Type: Spontaneous
  Country: US (occurrence: US)
  Receive Date: 20160308
  Receipt Date: 20160308
  Transmission Date: 20160526
  Serious: No
  Sender: FDA-Public Use
  Company Number: US-JNJFOC-20150204964

PATIENT
  Age: 77 Year
  Sex: Male

DRUGS (6)
  1. CYMBALTA [Concomitant]
     Active Substance: DULOXETINE HYDROCHLORIDE
  2. XANAX [Concomitant]
     Active Substance: ALPRAZOLAM
  3. IMBRUVICA [Suspect]
     Active Substance: IBRUTINIB
     Indication: CHRONIC LYMPHOCYTIC LEUKAEMIA
     Route: 048
     Dates: start: 20150129, end: 20150210
  4. CARBIDOPA. [Concomitant]
     Active Substance: CARBIDOPA
  5. FLONASE [Concomitant]
     Active Substance: FLUTICASONE PROPIONATE
  6. FUROSEMIDE. [Concomitant]
     Active Substance: FUROSEMIDE

REACTIONS (2)
  - Incorrect route of drug administration [Recovered/Resolved]
  - Incorrect dose administered [Recovered/Resolved]

NARRATIVE: CASE EVENT DATE: 20150203
